FAERS Safety Report 6774972-4 (Version None)
Quarter: 2010Q2

REPORT INFORMATION
  Report Type: 
  Country: None (occurrence: None)
  Receive Date: 20100617
  Receipt Date: 20100604
  Transmission Date: 20101027
  Serious: Yes (Other)
  Sender: FDA-Public Use
  Company Number: US-ELI_LILLY_AND_COMPANY-US201004006550

PATIENT
  Sex: Female

DRUGS (5)
  1. CYMBALTA [Suspect]
     Indication: DEPRESSION
     Dosage: 30 MG, UNK
     Route: 048
     Dates: start: 20100331, end: 20100410
  2. FLUOXETINE [Concomitant]
     Dosage: 40 MG, 2/D
     Dates: start: 20000101, end: 20100330
  3. FLUOXETINE [Concomitant]
     Dosage: 20 MG, DAILY (1/D)
     Dates: start: 20100331, end: 20100401
  4. FLUOXETINE [Concomitant]
     Dosage: 20 MG, 2/D
     Dates: start: 20100401
  5. XANAX [Concomitant]

REACTIONS (11)
  - DECREASED APPETITE [None]
  - DIZZINESS [None]
  - FALL [None]
  - FEELING ABNORMAL [None]
  - FOOT FRACTURE [None]
  - INSOMNIA [None]
  - JOINT INJURY [None]
  - NAUSEA [None]
  - PAIN IN EXTREMITY [None]
  - TREMOR [None]
  - UPPER LIMB FRACTURE [None]
